FAERS Safety Report 21740969 (Version 1)
Quarter: 2022Q4

REPORT INFORMATION
  Report Type: Report from Study
  Country: DE (occurrence: DE)
  Receive Date: 20221216
  Receipt Date: 20221216
  Transmission Date: 20230113
  Serious: Yes (Hospitalization, Other)
  Sender: FDA-Public Use
  Company Number: DE-002147023-NVSC2021DE145415

PATIENT
  Sex: Male

DRUGS (5)
  1. SULFASALAZINE [Suspect]
     Active Substance: SULFASALAZINE
     Indication: Axial spondyloarthritis
     Dosage: 2000 MG
     Route: 065
     Dates: start: 20190701, end: 20200324
  2. SULFASALAZINE [Suspect]
     Active Substance: SULFASALAZINE
     Dosage: 2000 MG
     Route: 065
     Dates: end: 20210209
  3. SULFASALAZINE [Suspect]
     Active Substance: SULFASALAZINE
     Dosage: 2000 MG, 1X/DAY
     Route: 065
     Dates: start: 2021, end: 2021
  4. COSENTYX [Suspect]
     Active Substance: SECUKINUMAB
     Indication: Axial spondyloarthritis
     Dosage: 150 MG
     Dates: start: 20190903
  5. COSENTYX [Suspect]
     Active Substance: SECUKINUMAB
     Dosage: 150 MG, EVERY 4 WEEKS
     Dates: start: 20200508

REACTIONS (4)
  - Ureterolithiasis [Recovered/Resolved]
  - Arthralgia [Unknown]
  - Chronic kidney disease [Unknown]
  - COVID-19 [Unknown]

NARRATIVE: CASE EVENT DATE: 20201023
